FAERS Safety Report 7625320 (Version 3)
Quarter: 2013Q3

REPORT INFORMATION
  Report Type: Spontaneous
  Country: JP (occurrence: JP)
  Receive Date: 20101012
  Receipt Date: 20130809
  Transmission Date: 20140515
  Serious: Yes (Hospitalization)
  Sender: FDA-Public Use
  Company Number: JP-ABBOTT-10P-087-0676289-00

PATIENT
  Age: 65 Year
  Sex: Female

DRUGS (18)
  1. HUMIRA 40 MG/ 0.8 ML PRE-FILLED SYRINGE [Suspect]
     Indication: RHEUMATOID ARTHRITIS
     Route: 058
     Dates: start: 20091023, end: 20100911
  2. SALAZOSULFAPYRIDINE [Concomitant]
     Indication: RHEUMATOID ARTHRITIS
     Route: 048
     Dates: start: 20090611
  3. PREDNISOLONE [Concomitant]
     Indication: RHEUMATOID ARTHRITIS
     Dosage: (5-0-2)/DAY
     Route: 048
     Dates: start: 20090126, end: 200903
  4. PREDNISOLONE [Concomitant]
     Dates: start: 200903, end: 200904
  5. PREDNISOLONE [Concomitant]
     Dates: start: 200904, end: 200905
  6. PREDNISOLONE [Concomitant]
     Dates: start: 200905, end: 200908
  7. PREDNISOLONE [Concomitant]
     Dates: start: 200908, end: 201005
  8. PREDNISOLONE [Concomitant]
     Dates: start: 201005, end: 20100701
  9. PREDNISOLONE [Concomitant]
     Dates: start: 20100701, end: 20100730
  10. PREDNISOLONE [Concomitant]
     Dates: start: 20100730
  11. CELECOXIB [Concomitant]
     Indication: RHEUMATOID ARTHRITIS
     Route: 048
     Dates: start: 20090223, end: 20100316
  12. PLAUNOTOL [Concomitant]
     Indication: PROPHYLAXIS
     Route: 048
     Dates: start: 20090223
  13. PLAUNOTOL [Concomitant]
     Indication: GASTROINTESTINAL MUCOSAL DISORDER
  14. SULFAMETHOXAZOLE AND TRIMETHOPRIM [Concomitant]
     Indication: PNEUMOCYSTIS JIROVECII PNEUMONIA
     Dosage: TUESDAY + FRIDAY
     Route: 048
     Dates: start: 20090305, end: 20100924
  15. SULFAMETHOXAZOLE AND TRIMETHOPRIM [Concomitant]
     Indication: PROPHYLAXIS
  16. ALENDRONATE SODIUM HYDRATE [Concomitant]
     Indication: OSTEOPOROSIS
     Route: 048
     Dates: start: 20090521, end: 20100924
  17. TELMISARTAN [Concomitant]
     Indication: HYPERTENSION
  18. ATENOLOL [Concomitant]
     Indication: HYPERTENSION

REACTIONS (10)
  - Pleurisy [Recovering/Resolving]
  - Pericarditis [Recovering/Resolving]
  - Joint stiffness [Unknown]
  - Blood pressure abnormal [Unknown]
  - Atrial fibrillation [Unknown]
  - Supraventricular tachycardia [Unknown]
  - Bradycardia [Unknown]
  - Blood albumin decreased [Unknown]
  - C-reactive protein increased [Unknown]
  - Infection [Unknown]
